FAERS Safety Report 16325033 (Version 1)
Quarter: 2019Q2

REPORT INFORMATION
  Report Type: Spontaneous
  Country: US (occurrence: US)
  Receive Date: 20190517
  Receipt Date: 20190517
  Transmission Date: 20190711
  Serious: Yes (Hospitalization, Other)
  Sender: FDA-Public Use
  Company Number: US-MYLANLABS-2019M1045727

PATIENT
  Age: 20 Year
  Sex: Female

DRUGS (4)
  1. MYCOPHENOLATE MOFETIL. [Suspect]
     Active Substance: MYCOPHENOLATE MOFETIL
     Indication: IMMUNOSUPPRESSANT DRUG THERAPY
     Route: 065
  2. TACROLIMUS. [Suspect]
     Active Substance: TACROLIMUS
     Indication: IMMUNOSUPPRESSANT DRUG THERAPY
     Route: 065
  3. EVEROLIMUS. [Suspect]
     Active Substance: EVEROLIMUS
     Indication: IMMUNOSUPPRESSANT DRUG THERAPY
     Route: 065
  4. RITUXIMAB. [Suspect]
     Active Substance: RITUXIMAB
     Indication: POST TRANSPLANT LYMPHOPROLIFERATIVE DISORDER
     Dosage: SIX DOSES
     Route: 065

REACTIONS (9)
  - Seizure [Recovered/Resolved]
  - Focal segmental glomerulosclerosis [Recovered/Resolved]
  - Dysuria [Recovered/Resolved]
  - Bacterial pyelonephritis [Recovered/Resolved]
  - Renal failure [Recovered/Resolved]
  - Mental status changes [Recovered/Resolved]
  - Ureaplasma infection [Recovered/Resolved]
  - Hydronephrosis [Recovered/Resolved]
  - Kidney fibrosis [Recovered/Resolved]
